FAERS Safety Report 9160642 (Version 1)
Quarter: 2013Q1

REPORT INFORMATION
  Report Type: Spontaneous
  Country: US (occurrence: US)
  Receive Date: 20130313
  Receipt Date: 20130313
  Transmission Date: 20140127
  Serious: No
  Sender: FDA-Public Use
  Company Number: US-ABBOTT-12P-163-0950017-00

PATIENT
  Age: 31 Year
  Sex: Male

DRUGS (10)
  1. DEPAKOTE [Suspect]
     Indication: MANIA
     Dosage: 1-500MG TAB + 1-250MG TAB TWICE DAILY
     Dates: end: 20120621
  2. DEPAKOTE [Suspect]
     Dosage: 2-500MG TAB IN A.M., 1-500MG TAB IN P.M.
     Dates: start: 20120621, end: 20120621
  3. DEPAKOTE [Suspect]
     Dosage: 1-500MG TAB IN A.M, 1-500MG TAB IN P.M.
     Dates: start: 20120622, end: 20120622
  4. DEPAKOTE [Suspect]
     Dosage: 1-500MG TAB IN A.M., 2-500MG TAB IN P.M.
     Dates: start: 20120623, end: 20120623
  5. DEPAKOTE [Suspect]
     Dosage: 1-500MG TAB IN A.M., 1-500MG TAB IN P.M.
     Dates: start: 20120624
  6. FLUVOXAMINE [Concomitant]
     Indication: PRODUCT USED FOR UNKNOWN INDICATION
  7. TRAZODONE [Concomitant]
     Indication: SOMNOLENCE
  8. RAMIPRIL [Concomitant]
     Indication: HYPERTENSION
  9. SIMVASTATIN [Concomitant]
     Indication: BLOOD CHOLESTEROL INCREASED
  10. LEVOTHYROXINE [Concomitant]
     Indication: HYPOTHYROIDISM

REACTIONS (5)
  - Psychomotor hyperactivity [Not Recovered/Not Resolved]
  - Depression [Recovered/Resolved]
  - Chest pain [Recovered/Resolved]
  - Somnolence [Recovered/Resolved]
  - Palpitations [Recovered/Resolved]
